FAERS Safety Report 11036556 (Version 4)
Quarter: 2015Q2

REPORT INFORMATION
  Report Type: Spontaneous
  Country: BR (occurrence: BR)
  Receive Date: 20150416
  Receipt Date: 20150618
  Transmission Date: 20150821
  Serious: Yes (Other)
  Sender: FDA-Public Use
  Company Number: BR-ASTRAZENECA-2015SE33932

PATIENT
  Age: 67 Year
  Sex: Female

DRUGS (16)
  1. LABEL [Concomitant]
     Indication: HIATUS HERNIA
  2. SPIRIVA [Concomitant]
     Active Substance: TIOTROPIUM BROMIDE MONOHYDRATE
     Indication: BRONCHITIS
     Route: 055
  3. SYMBICORT [Suspect]
     Active Substance: BUDESONIDE\FORMOTEROL FUMARATE DIHYDRATE
     Indication: BRONCHITIS
     Dosage: 320/9MCG, UNKNOWN
     Route: 055
     Dates: start: 2015, end: 2015
  4. SYMBICORT [Suspect]
     Active Substance: BUDESONIDE\FORMOTEROL FUMARATE DIHYDRATE
     Indication: ALPHA-1 ANTI-TRYPSIN DEFICIENCY
     Dosage: UNKNOWN
     Route: 055
     Dates: start: 2015
  5. CALCORT [Suspect]
     Active Substance: DEFLAZACORT
     Indication: ALPHA-1 ANTI-TRYPSIN DEFICIENCY
     Route: 048
     Dates: start: 2015
  6. VENALOT [Concomitant]
     Active Substance: COUMARIN\TROXERUTIN
     Indication: VARICOSE VEIN
  7. SYMBICORT [Suspect]
     Active Substance: BUDESONIDE\FORMOTEROL FUMARATE DIHYDRATE
     Indication: ALPHA-1 ANTI-TRYPSIN DEFICIENCY
     Dosage: UNKNOWN
     Route: 055
     Dates: start: 2010, end: 2015
  8. SYMBICORT [Suspect]
     Active Substance: BUDESONIDE\FORMOTEROL FUMARATE DIHYDRATE
     Indication: BRONCHITIS
     Dosage: UNKNOWN
     Route: 055
     Dates: start: 2015
  9. SYMBICORT [Suspect]
     Active Substance: BUDESONIDE\FORMOTEROL FUMARATE DIHYDRATE
     Indication: CHRONIC OBSTRUCTIVE PULMONARY DISEASE
     Dosage: UNKNOWN
     Route: 055
     Dates: start: 2010, end: 2015
  10. SYMBICORT [Suspect]
     Active Substance: BUDESONIDE\FORMOTEROL FUMARATE DIHYDRATE
     Indication: CHRONIC OBSTRUCTIVE PULMONARY DISEASE
     Dosage: UNKNOWN
     Route: 055
     Dates: start: 2015
  11. SYMBICORT [Suspect]
     Active Substance: BUDESONIDE\FORMOTEROL FUMARATE DIHYDRATE
     Indication: CHRONIC OBSTRUCTIVE PULMONARY DISEASE
     Dosage: 320/9MCG, UNKNOWN
     Route: 055
     Dates: start: 2015, end: 2015
  12. SPIRIVA [Concomitant]
     Active Substance: TIOTROPIUM BROMIDE MONOHYDRATE
     Indication: ALPHA-1 ANTI-TRYPSIN DEFICIENCY
     Route: 055
  13. SYMBICORT [Suspect]
     Active Substance: BUDESONIDE\FORMOTEROL FUMARATE DIHYDRATE
     Indication: BRONCHITIS
     Dosage: UNKNOWN
     Route: 055
     Dates: start: 2010, end: 2015
  14. SYMBICORT [Suspect]
     Active Substance: BUDESONIDE\FORMOTEROL FUMARATE DIHYDRATE
     Indication: ALPHA-1 ANTI-TRYPSIN DEFICIENCY
     Dosage: 320/9MCG, UNKNOWN
     Route: 055
     Dates: start: 2015, end: 2015
  15. SPIRIVA [Concomitant]
     Active Substance: TIOTROPIUM BROMIDE MONOHYDRATE
     Indication: CHRONIC OBSTRUCTIVE PULMONARY DISEASE
     Route: 055
  16. LABEL [Concomitant]
     Indication: GASTROOESOPHAGEAL REFLUX DISEASE

REACTIONS (5)
  - Weight decreased [Unknown]
  - Intentional product misuse [Recovered/Resolved]
  - Osteoporosis [Not Recovered/Not Resolved]
  - Cataract [Not Recovered/Not Resolved]
  - Dyspnoea [Not Recovered/Not Resolved]

NARRATIVE: CASE EVENT DATE: 2015
